FAERS Safety Report 22730717 (Version 4)
Quarter: 2024Q2

REPORT INFORMATION
  Report Type: Report from Study
  Country: CA (occurrence: CA)
  Receive Date: 20230720
  Receipt Date: 20240409
  Transmission Date: 20240715
  Serious: Yes (Hospitalization)
  Sender: FDA-Public Use
  Company Number: CA-JNJFOC-20230618483

PATIENT
  Age: 76 Year
  Sex: Female
  Weight: 49 kg

DRUGS (3)
  1. REMICADE [Suspect]
     Active Substance: INFLIXIMAB
     Indication: Crohn^s disease
     Route: 041
     Dates: start: 20210614
  2. REMICADE [Suspect]
     Active Substance: INFLIXIMAB
     Dosage: PATIENT RECEIVED LAST DOSE ON 16-MAY-2023
     Route: 041
  3. REMICADE [Suspect]
     Active Substance: INFLIXIMAB
     Route: 041
     Dates: start: 20240305

REACTIONS (4)
  - Intestinal resection [Recovering/Resolving]
  - Sciatica [Unknown]
  - Inappropriate schedule of product administration [Unknown]
  - Hypertension [Unknown]

NARRATIVE: CASE EVENT DATE: 20230613
